FAERS Safety Report 9418240 (Version 1)
Quarter: 2013Q3

REPORT INFORMATION
  Report Type: Spontaneous
  Country: FI (occurrence: FI)
  Receive Date: 20130724
  Receipt Date: 20130724
  Transmission Date: 20140515
  Serious: Yes (Other)
  Sender: FDA-Public Use
  Company Number: FI-PFIZER INC-2013216571

PATIENT
  Sex: 0

DRUGS (3)
  1. ZELDOX [Suspect]
     Dosage: UNK
  2. ZOLOFT [Suspect]
     Dosage: UNK
  3. ZYPREXA [Suspect]
     Dosage: UNK

REACTIONS (6)
  - Panic disorder [Unknown]
  - Fear [Unknown]
  - Psychotic disorder [Unknown]
  - Anxiety [Unknown]
  - Agitation [Unknown]
  - Feeling abnormal [Unknown]
